FAERS Safety Report 6707847-7 (Version None)
Quarter: 2010Q2

REPORT INFORMATION
  Report Type: 
  Country: None (occurrence: None)
  Receive Date: 20100429
  Receipt Date: 20100420
  Transmission Date: 20101027
  Serious: Yes (Other)
  Sender: FDA-Public Use
  Company Number: 1000013035

PATIENT
  Age: 37 Year
  Sex: Male
  Weight: 65 kg

DRUGS (10)
  1. ESCITALOPRAM [Suspect]
     Indication: ANXIETY
     Dosage: 20 MG (20 MG, 1 IN 1 D), ORAL
     Route: 048
     Dates: start: 20100201
  2. ESCITALOPRAM [Suspect]
     Indication: DEPRESSION
     Dosage: 20 MG (20 MG, 1 IN 1 D), ORAL
     Route: 048
     Dates: start: 20100201
  3. ESCITALOPRAM [Suspect]
     Indication: ANXIETY
     Dosage: 10 MG (10 MG, 1 IN 1 D), ORAL
     Route: 048
  4. ESCITALOPRAM [Suspect]
     Indication: DEPRESSION
     Dosage: 10 MG (10 MG, 1 IN 1 D), ORAL
     Route: 048
  5. ATARAX [Concomitant]
  6. LORAZEPAM [Concomitant]
  7. ZOLPIDEM [Concomitant]
  8. HAVLANE [Concomitant]
  9. DIANTALVIC [Concomitant]
  10. AVLOCARDYL [Concomitant]

REACTIONS (8)
  - AGGRESSION [None]
  - AGITATION [None]
  - ANXIETY [None]
  - FEELING ABNORMAL [None]
  - MUSCLE TIGHTNESS [None]
  - PAIN [None]
  - PARAESTHESIA [None]
  - WITHDRAWAL SYNDROME [None]
